FAERS Safety Report 6292596-2 (Version None)
Quarter: 2009Q3

REPORT INFORMATION
  Report Type: 
  Country: None (occurrence: None)
  Receive Date: 20090731
  Receipt Date: 20090724
  Transmission Date: 20100115
  Serious: Yes (Other)
  Sender: FDA-Public Use
  Company Number: US-ASTRAZENECA-2009UW21335

PATIENT
  Age: 747 Month
  Sex: Male
  Weight: 111.1 kg

DRUGS (10)
  1. SEROQUEL [Suspect]
     Indication: SLEEP DISORDER
     Route: 048
     Dates: start: 20081201, end: 20090214
  2. ZOLOFT [Concomitant]
  3. XANAX [Concomitant]
     Indication: ANXIETY
  4. XANAX [Concomitant]
     Indication: SLEEP DISORDER
  5. GLIPIZIDE [Concomitant]
  6. LISINOPRIL [Concomitant]
  7. ATENOLOL [Concomitant]
  8. SIMVASTATIN [Concomitant]
  9. ASPIRIN [Concomitant]
  10. DOCUSATE [Concomitant]

REACTIONS (3)
  - HALLUCINATION [None]
  - PHYSICAL ASSAULT [None]
  - WRONG TECHNIQUE IN DRUG USAGE PROCESS [None]
